FAERS Safety Report 11313265 (Version 1)
Quarter: 2015Q3

REPORT INFORMATION
  Report Type: Spontaneous
  Country: US (occurrence: None)
  Receive Date: 20150724
  Receipt Date: 20150724
  Transmission Date: 20151125
  Serious: Yes (Other)
  Sender: FDA-Public Use
  Company Number: None

PATIENT
  Age: 28 Year
  Sex: Male
  Weight: 90.72 kg

DRUGS (1)
  1. GENERIC ZOLPIDEM 5 MG [Suspect]
     Active Substance: ZOLPIDEM\ZOLPIDEM TARTRATE
     Indication: INSOMNIA
     Dosage: 5-29 MG HS QHS/BEDTIME OPHTHALMIC
     Route: 047
     Dates: start: 19991101, end: 20000101

REACTIONS (3)
  - Drug ineffective [None]
  - Insomnia [None]
  - Product substitution issue [None]

NARRATIVE: CASE EVENT DATE: 20000101
